FAERS Safety Report 4639883-9 (Version None)
Quarter: 2005Q2

REPORT INFORMATION
  Report Type: 
  Country: None (occurrence: None)
  Receive Date: 20050418
  Receipt Date: 20050404
  Transmission Date: 20051028
  Serious: Yes (Hospitalization)
  Sender: FDA-Public Use
  Company Number: 2005047629

PATIENT
  Age: 53 Year
  Sex: Male

DRUGS (7)
  1. DOXORUBICIN HYDROCHLORIDE [Suspect]
     Indication: ILL-DEFINED DISORDER
     Dosage: 150 MG (150 MG, CYCLIC; INTERVAL:  EVERY DAY), INTRAVENOUS
     Route: 042
     Dates: start: 20050204
  2. BLEOMYCIN [Suspect]
     Indication: ILL-DEFINED DISORDER
     Dosage: 10 MG (10 MG, CYCLIC; INTERVAL: EVERY DAY), INTRAVENOUS
     Route: 042
     Dates: start: 20050204
  3. CYCLOPHOSPHAMIDE [Suspect]
     Indication: ILL-DEFINED DISORDER
     Dosage: 2.4 GRAM (2.4 GRAM, CYCLIC; INTERVAL:  EVERY DAY), INTRAVENOUS
     Route: 042
     Dates: start: 20050204
  4. METHOTREXATE [Suspect]
     Indication: ILL-DEFINED DISORDER
     Dosage: (15 MG, CYCLIC), INTRATHECAL
     Route: 037
     Dates: start: 20050204
  5. VINDESINE (VINDESINE) [Suspect]
     Indication: ILL-DEFINED DISORDER
     Dosage: 4 MG (4 MG, CYCLIC; INTERVAL:  EVERY DAY), INTRAVENOUS
     Route: 042
     Dates: start: 20050204
  6. RITUXIMAB (RITUXIMAB) [Suspect]
     Indication: ILL-DEFINED DISORDER
     Dosage: 750 MG (750 MG, CYCLIC; INTERVAL:  EVERY DAY), INTRAMUSCULAR
     Route: 030
     Dates: start: 20050204
  7. PREDNISONE [Concomitant]

REACTIONS (2)
  - PNEUMOCYSTIS JIROVECI PNEUMONIA [None]
  - THERAPY NON-RESPONDER [None]
